FAERS Safety Report 7995215-X (Version None)
Quarter: 2011Q4

REPORT INFORMATION
  Report Type: 
  Country: None (occurrence: None)
  Receive Date: 20111220
  Receipt Date: 20111209
  Transmission Date: 20120403
  Serious: Yes (Other)
  Sender: FDA-Public Use
  Company Number: FR-VERTEX PHARMACEUTICALS INC.-AE-2011-003562

PATIENT
  Sex: Female
  Weight: 56.6 kg

DRUGS (8)
  1. EMTRICITABINE [Concomitant]
     Indication: HIV INFECTION
     Dates: start: 20070702
  2. RIBAVIRIN [Concomitant]
     Indication: HEPATITIS C
     Dates: start: 20111003
  3. VX-950 [Suspect]
     Indication: HEPATITIS C
     Route: 048
     Dates: start: 20111031
  4. IBUPROFEN [Concomitant]
     Indication: MYALGIA
     Route: 065
  5. INTERFERON [Concomitant]
     Indication: HEPATITIS C
     Route: 058
     Dates: start: 20111003
  6. VIREAD [Concomitant]
     Indication: HIV INFECTION
     Route: 065
     Dates: start: 20050715
  7. ATAZANAVIR [Concomitant]
     Indication: HIV INFECTION
     Route: 065
     Dates: start: 20110401, end: 20111114
  8. NORVIR [Concomitant]
     Indication: HIV INFECTION
     Route: 065
     Dates: start: 20110401, end: 20111114

REACTIONS (2)
  - RENAL FAILURE [None]
  - HYPERBILIRUBINAEMIA [None]
